FAERS Safety Report 12423721 (Version 1)
Quarter: 2016Q2

REPORT INFORMATION
  Report Type: Spontaneous
  Country: US (occurrence: None)
  Receive Date: 20160531
  Receipt Date: 20160531
  Transmission Date: 20160815
  Serious: Yes (Hospitalization)
  Sender: FDA-Public Use
  Company Number: None

PATIENT
  Age: 34 Year
  Sex: Female
  Weight: 58 kg

DRUGS (5)
  1. BECLOMETHASONE (QVAR) [Concomitant]
  2. METHIMAZOLE. [Suspect]
     Active Substance: METHIMAZOLE
     Indication: BASEDOW^S DISEASE
     Route: 048
     Dates: start: 20151213, end: 20160115
  3. PROPRANOLOL (INDERAL) [Concomitant]
  4. ALBUTEROL HFA [Concomitant]
     Active Substance: ALBUTEROL SULFATE
  5. LORATADINE (CLARITIN) [Concomitant]

REACTIONS (8)
  - Fatigue [None]
  - Gingival swelling [None]
  - Hyperthyroidism [None]
  - Diarrhoea [None]
  - Anxiety [None]
  - Tremor [None]
  - Oropharyngeal pain [None]
  - Neutropenia [None]

NARRATIVE: CASE EVENT DATE: 20160115
